FAERS Safety Report 4393756-8 (Version None)
Quarter: 2004Q3

REPORT INFORMATION
  Report Type: 
  Country: None (occurrence: None)
  Receive Date: 20040701
  Receipt Date: 20040622
  Transmission Date: 20050211
  Serious: Yes (Death)
  Sender: FDA-Public Use
  Company Number: JP-JNJFOC-20031201331

PATIENT
  Age: 52 Year
  Sex: Male

DRUGS (6)
  1. FENTANYL [Suspect]
     Indication: CANCER PAIN
     Dosage: 7.5 MG, 1 IN 72 HOUR, TRANSDERMAL
     Route: 062
     Dates: start: 20031021, end: 20031102
  2. MORPHINE [Suspect]
     Indication: CANCER PAIN
     Dosage: 50 MG, 1 IN 24 HOUR, ORAL
     Route: 048
     Dates: start: 20031014, end: 20031102
  3. ITOPRIDE HYDROCHLORIDE (ITOPRIDE HYDROCHLORIDE) [Concomitant]
  4. DICLOFENAC SODIUM [Concomitant]
  5. SULPIRIDE (SULPIRIDE) [Concomitant]
  6. MEROPENEM TRIHYDRATE (MEROPENEM) [Concomitant]

REACTIONS (6)
  - CARDIAC ARREST [None]
  - DEPRESSED LEVEL OF CONSCIOUSNESS [None]
  - FALL [None]
  - HYPOXIA [None]
  - RESPIRATORY ARREST [None]
  - URINARY INCONTINENCE [None]
